FAERS Safety Report 10465093 (Version 2)
Quarter: 2014Q3

REPORT INFORMATION
  Report Type: Spontaneous
  Country: US (occurrence: US)
  Receive Date: 20140919
  Receipt Date: 20140923
  Transmission Date: 20150326
  Serious: Yes (Hospitalization, Other)
  Sender: FDA-Public Use
  Company Number: CHPA2014US012374

PATIENT
  Age: 64 Year
  Sex: Female

DRUGS (1)
  1. TRANSDERM SCOP [Suspect]
     Active Substance: SCOPOLAMINE
     Indication: PROCEDURAL NAUSEA
     Dosage: 1 DF, Q72H
     Route: 062
     Dates: start: 20140605, end: 201407

REACTIONS (6)
  - Hypersensitivity [Unknown]
  - Dyspnoea [Recovered/Resolved]
  - Throat tightness [Unknown]
  - Pulmonary embolism [Recovering/Resolving]
  - Dysphonia [Recovering/Resolving]
  - Aphagia [Recovering/Resolving]

NARRATIVE: CASE EVENT DATE: 201406
